FAERS Safety Report 15129999 (Version 1)
Quarter: 2018Q3

REPORT INFORMATION
  Report Type: Spontaneous
  Country: BR (occurrence: BR)
  Receive Date: 20180711
  Receipt Date: 20180711
  Transmission Date: 20181010
  Serious: Yes (Other)
  Sender: FDA-Public Use
  Company Number: BR-PFIZER INC-2016247534

PATIENT
  Age: 60 Year
  Sex: Male
  Weight: 80 kg

DRUGS (5)
  1. SUTENT [Suspect]
     Active Substance: SUNITINIB MALATE
     Dosage: 50 MG, CYCLIC 2 PER 1 (1 CAPSULE, DAILY, 50 MG FOR 14 DAYS WITH 1 WEEK OF RESTING)
     Dates: start: 201610, end: 20170618
  2. SUTENT [Suspect]
     Active Substance: SUNITINIB MALATE
     Dosage: 50 MG, CYCLE 4 PER 2
     Route: 048
  3. SUTENT [Suspect]
     Active Substance: SUNITINIB MALATE
     Dosage: 50 MG, CYCLE 4 PER 2
     Dates: end: 201610
  4. SUTENT [Suspect]
     Active Substance: SUNITINIB MALATE
     Indication: METASTATIC RENAL CELL CARCINOMA
     Dosage: 50 MG, CYCLIC 4 PER 2
     Route: 048
     Dates: start: 20160413
  5. CAPTOPRIL. [Concomitant]
     Active Substance: CAPTOPRIL
     Dosage: UNK, 2X/DAY (TAKEN IN THE MORNING AND AT NIGHT)

REACTIONS (26)
  - Nausea [Not Recovered/Not Resolved]
  - Insomnia [Recovered/Resolved]
  - Plantar erythema [Unknown]
  - Gait disturbance [Unknown]
  - Gastrooesophageal reflux disease [Recovered/Resolved]
  - Diarrhoea [Recovered/Resolved]
  - Dyspepsia [Recovered/Resolved]
  - Chromaturia [Not Recovered/Not Resolved]
  - Dry mouth [Recovered/Resolved]
  - Condition aggravated [Recovered/Resolved]
  - Vomiting [Recovered/Resolved]
  - Vision blurred [Not Recovered/Not Resolved]
  - Cataract [Not Recovered/Not Resolved]
  - Ageusia [Recovered/Resolved]
  - Weight decreased [Recovered/Resolved]
  - Skin exfoliation [Recovered/Resolved]
  - Oral candidiasis [Not Recovered/Not Resolved]
  - Gingival pain [Recovered/Resolved]
  - Pain in extremity [Recovered/Resolved]
  - Blood pressure abnormal [Recovered/Resolved]
  - Aphthous ulcer [Recovered/Resolved]
  - Hyperkeratosis [Recovered/Resolved]
  - Erythema [Recovered/Resolved]
  - Decreased appetite [Recovered/Resolved]
  - Dry skin [Not Recovered/Not Resolved]
  - Thyroid disorder [Unknown]

NARRATIVE: CASE EVENT DATE: 2016
